FAERS Safety Report 23052053 (Version 1)
Quarter: 2023Q4

REPORT INFORMATION
  Report Type: Other
  Country: US (occurrence: US)
  Receive Date: 20231010
  Receipt Date: 20231010
  Transmission Date: 20240110
  Serious: Yes (Death, Hospitalization)
  Sender: FDA-Public Use
  Company Number: US-BoehringerIngelheim-2023-BI-265222

PATIENT
  Age: 29 Year
  Sex: Female

DRUGS (1)
  1. ALTEPLASE [Suspect]
     Active Substance: ALTEPLASE
     Indication: Superior vena cava syndrome
     Dosage: FOR 24 HOURS
     Route: 065

REACTIONS (3)
  - Acute chest syndrome [Fatal]
  - Haemolytic anaemia [Recovering/Resolving]
  - Off label use [Unknown]
